FAERS Safety Report 9661635 (Version 2)
Quarter: 2013Q4

REPORT INFORMATION
  Report Type: Spontaneous
  Country: None (occurrence: US)
  Receive Date: 20131031
  Receipt Date: 20131031
  Transmission Date: 20140711
  Serious: No
  Sender: FDA-Public Use
  Company Number: US-PURDUE-USA-2010-0055703

PATIENT
  Sex: Male

DRUGS (3)
  1. OXYCONTIN (NDA 22-272) [Suspect]
     Indication: PAIN
     Dosage: 40 MG, TID
     Dates: start: 201010
  2. OXYCODONE HCL IR CAPSULES [Concomitant]
     Indication: BREAKTHROUGH PAIN
  3. NEURONTIN [Concomitant]
     Indication: NERVE ROOT INJURY CERVICAL

REACTIONS (8)
  - Palpitations [Unknown]
  - Foreign body [Not Recovered/Not Resolved]
  - Therapeutic response delayed [Not Recovered/Not Resolved]
  - Drug effect decreased [Unknown]
  - Abdominal pain [Not Recovered/Not Resolved]
  - Constipation [Not Recovered/Not Resolved]
  - Dizziness [Unknown]
  - Nausea [Unknown]
